FAERS Safety Report 24244727 (Version 2)
Quarter: 2024Q3

REPORT INFORMATION
  Report Type: Report from Study
  Country: US (occurrence: US)
  Receive Date: 20240823
  Receipt Date: 20240902
  Transmission Date: 20241017
  Serious: Yes (Other)
  Sender: ABBVIE
  Company Number: US-ABBVIE-5889966

PATIENT
  Sex: Male

DRUGS (2)
  1. HUMIRA [Suspect]
     Active Substance: ADALIMUMAB
     Indication: Autoimmune disorder
     Route: 058
     Dates: start: 2023
  2. METHOTREXATE [Suspect]
     Active Substance: METHOTREXATE
     Indication: Product used for unknown indication
     Route: 065
     Dates: start: 202402

REACTIONS (8)
  - Ligament disorder [Recovering/Resolving]
  - Gastrointestinal inflammation [Unknown]
  - Autoimmune disorder [Unknown]
  - Malaise [Not Recovered/Not Resolved]
  - Product use in unapproved indication [Unknown]
  - Fatigue [Not Recovered/Not Resolved]
  - Autoimmune disorder [Unknown]
  - Liver function test increased [Unknown]

NARRATIVE: CASE EVENT DATE: 20230101
